FAERS Safety Report 18566950 (Version 2)
Quarter: 2021Q1

REPORT INFORMATION
  Report Type: Spontaneous
  Country: US (occurrence: US)
  Receive Date: 20201201
  Receipt Date: 20210113
  Transmission Date: 20210419
  Serious: Yes (Hospitalization, Other)
  Sender: FDA-Public Use
  Company Number: US-INCYTE CORPORATION-2020IN011956

PATIENT

DRUGS (2)
  1. JAKAFI [Suspect]
     Active Substance: RUXOLITINIB
     Indication: POLYCYTHAEMIA VERA
     Dosage: 20 MILLIGRAM, BID
     Route: 048
     Dates: start: 20200919
  2. JAKAFI [Suspect]
     Active Substance: RUXOLITINIB
     Dosage: 10 MILLIGRAM, BID
     Route: 048
     Dates: start: 20200919

REACTIONS (5)
  - Syncope [Unknown]
  - Coronary artery insufficiency [Recovering/Resolving]
  - Dizziness [Recovered/Resolved]
  - Myocardial infarction [Unknown]
  - Neurological symptom [Unknown]
